FAERS Safety Report 4999589-3 (Version None)
Quarter: 2006Q2

REPORT INFORMATION
  Report Type: 
  Country: None (occurrence: None)
  Receive Date: 20060511
  Receipt Date: 20060126
  Transmission Date: 20061013
  Serious: Yes (Hospitalization, Disabling)
  Sender: FDA-Public Use
  Company Number: US-MERCK-0601USA03574

PATIENT
  Age: 50 Year
  Sex: Male
  Weight: 114 kg

DRUGS (5)
  1. VIOXX [Suspect]
     Indication: BACK PAIN
     Route: 048
     Dates: start: 20010430, end: 20010508
  2. VIOXX [Suspect]
     Indication: ARTHRITIS
     Route: 048
     Dates: start: 20010430, end: 20010508
  3. IBUPROFEN [Concomitant]
     Route: 065
     Dates: start: 20010307, end: 20021110
  4. METHYLPREDNISOLONE [Concomitant]
     Route: 065
     Dates: start: 20010430, end: 20010520
  5. OXYCONTIN [Concomitant]
     Route: 065
     Dates: start: 20010430, end: 20011122

REACTIONS (14)
  - ANGINA UNSTABLE [None]
  - ARTERIOSCLEROSIS CORONARY ARTERY [None]
  - BLOOD CHOLESTEROL INCREASED [None]
  - CARDIAC FAILURE [None]
  - COUGH [None]
  - HERNIA [None]
  - HYPERLIPIDAEMIA [None]
  - HYPERTENSION [None]
  - HYPOKALAEMIA [None]
  - ISCHAEMIC CARDIOMYOPATHY [None]
  - MICROCYTIC ANAEMIA [None]
  - MYOCARDIAL INFARCTION [None]
  - ORTHOPNOEA [None]
  - PRESCRIBED OVERDOSE [None]
